FAERS Safety Report 6040726-X (Version None)
Quarter: 2009Q1

REPORT INFORMATION
  Report Type: 
  Country: None (occurrence: None)
  Receive Date: 20090116
  Receipt Date: 20080513
  Transmission Date: 20090719
  Serious: No
  Sender: FDA-Public Use
  Company Number: US-BRISTOL-MYERS SQUIBB COMPANY-14189286

PATIENT
  Age: 16 Year
  Sex: Male
  Weight: 149 kg

DRUGS (7)
  1. ABILIFY [Suspect]
  2. METOPROLOL TARTRATE [Concomitant]
  3. DEPAKOTE [Concomitant]
  4. PREVACID [Concomitant]
  5. LEVOTHYROXINE SODIUM [Concomitant]
  6. REMERON [Concomitant]
  7. WELLBUTRIN [Concomitant]

REACTIONS (2)
  - HYPERTENSION [None]
  - MOTOR DYSFUNCTION [None]
